FAERS Safety Report 16831083 (Version 1)
Quarter: 2019Q3

REPORT INFORMATION
  Report Type: Spontaneous
  Country: ES (occurrence: ES)
  Receive Date: 20190920
  Receipt Date: 20190920
  Transmission Date: 20191005
  Serious: Yes (Life-Threatening)
  Sender: FDA-Public Use
  Company Number: ES-TEVA-2019-ES-1109668

PATIENT
  Age: 57 Year
  Sex: Female
  Weight: 62 kg

DRUGS (1)
  1. OXALIPLATINO TEVA 5 MG/ML CONCENTRADO PARA SOLUCION PARA PERFUSION EFG [Suspect]
     Active Substance: OXALIPLATIN
     Indication: ADJUVANT THERAPY
     Dosage: 130MG / M2 / 1 DAY, EVERY 21 DAYS
     Route: 041
     Dates: start: 20190731, end: 20190731

REACTIONS (3)
  - Laryngospasm [Recovered/Resolved]
  - Respiratory distress [Recovered/Resolved]
  - Hypersensitivity [Recovered/Resolved]

NARRATIVE: CASE EVENT DATE: 20190731
